FAERS Safety Report 21751364 (Version 1)
Quarter: 2022Q4

REPORT INFORMATION
  Report Type: Spontaneous
  Country: US (occurrence: US)
  Receive Date: 20221220
  Receipt Date: 20221220
  Transmission Date: 20230112
  Serious: No
  Sender: FDA-Public Use
  Company Number: US-SA-SAC20221219000544

PATIENT
  Age: 71 Year
  Sex: Male

DRUGS (22)
  1. KEVZARA [Suspect]
     Active Substance: SARILUMAB
     Indication: Rheumatoid arthritis
     Dosage: 200 MG, QOW
     Route: 058
  2. ASPIRIN [Concomitant]
     Active Substance: ASPIRIN
  3. ATORVASTATIN CALCIUM [Concomitant]
     Active Substance: ATORVASTATIN CALCIUM
  4. HYDROXYZINE HYDROCHLORIDE [Concomitant]
     Active Substance: HYDROXYZINE HYDROCHLORIDE
  5. NITROGLYCERIN [Concomitant]
     Active Substance: NITROGLYCERIN
  6. LIPITOR [Concomitant]
     Active Substance: ATORVASTATIN CALCIUM
  7. XYLOMETAZOLINE HYDROCHLORIDE [Concomitant]
     Active Substance: XYLOMETAZOLINE HYDROCHLORIDE
  8. ZOLOFT [Concomitant]
     Active Substance: SERTRALINE HYDROCHLORIDE
  9. ALPRAZOLAM [Concomitant]
     Active Substance: ALPRAZOLAM
  10. AZITHROMYCIN [Concomitant]
     Active Substance: AZITHROMYCIN
  11. CELECOXIB [Concomitant]
     Active Substance: CELECOXIB
  12. DEXILANT [Concomitant]
     Active Substance: DEXLANSOPRAZOLE
  13. FLUOROURACIL [Concomitant]
     Active Substance: FLUOROURACIL
  14. HYDROCODONE BITARTRATE AND ACETAMINOPHEN [Concomitant]
     Active Substance: ACETAMINOPHEN\HYDROCODONE BITARTRATE
  15. PREDNISONE [Concomitant]
     Active Substance: PREDNISONE
  16. SERTRALINE [Concomitant]
     Active Substance: SERTRALINE HYDROCHLORIDE
  17. SOOLANTRA [Concomitant]
     Active Substance: IVERMECTIN
  18. TAMSULOSIN [Concomitant]
     Active Substance: TAMSULOSIN
  19. TRAMADOL HCL [Concomitant]
     Active Substance: TRAMADOL HYDROCHLORIDE
  20. ESOMEPRAZOLE MAGNESIUM [Concomitant]
     Active Substance: ESOMEPRAZOLE MAGNESIUM
  21. HYDROCORTISONE [Concomitant]
     Active Substance: HYDROCORTISONE
  22. TRIAMCINOLONE [Concomitant]
     Active Substance: TRIAMCINOLONE

REACTIONS (2)
  - COVID-19 [Unknown]
  - Sinusitis [Unknown]
